FAERS Safety Report 7202199-0 (Version None)
Quarter: 2010Q4

REPORT INFORMATION
  Report Type: 
  Country: None (occurrence: None)
  Receive Date: 20101229
  Receipt Date: 20101216
  Transmission Date: 20110411
  Serious: Yes (Other)
  Sender: FDA-Public Use
  Company Number: PHHY2010DE87285

PATIENT
  Sex: Male

DRUGS (6)
  1. ZOLEDRONATE [Suspect]
     Dosage: UNK
     Route: 042
     Dates: start: 20071101
  2. ENOXAPARIN SODIUM [Concomitant]
     Dosage: UNK
  3. METOPROLOL [Concomitant]
     Dosage: UNK
  4. RAMIPRIL [Concomitant]
     Dosage: UNK
  5. PANTOPRAZOLE [Concomitant]
     Dosage: UNK
  6. ALLOPURINOL [Concomitant]
     Dosage: UNK

REACTIONS (1)
  - OSTEONECROSIS [None]
